FAERS Safety Report 14949744 (Version 1)
Quarter: 2018Q2

REPORT INFORMATION
  Report Type: Spontaneous
  Country: FR (occurrence: FR)
  Receive Date: 20180529
  Receipt Date: 20180529
  Transmission Date: 20180711
  Serious: Yes (Life-Threatening)
  Sender: FDA-Public Use
  Company Number: FR-TEVA-2018-FR-898765

PATIENT
  Age: 34 Year
  Sex: Male
  Weight: 97 kg

DRUGS (6)
  1. ZYPREXA [Suspect]
     Active Substance: OLANZAPINE
     Indication: SCHIZOPHRENIA
     Dosage: 1 DOSAGE FORMS DAILY;
     Route: 048
     Dates: start: 201511, end: 20170212
  2. LEPTICUR 10 MG, TABLET [Suspect]
     Active Substance: TROPATEPINE HYDROCHLORIDE
     Dosage: 1 DOSAGE FORMS DAILY;
     Route: 048
     Dates: start: 201511
  3. SERESTA [Suspect]
     Active Substance: OXAZEPAM
     Indication: ANXIETY
     Dosage: 30 MILLIGRAM DAILY;
     Route: 048
     Dates: start: 201511
  4. ZOPICLONE [Suspect]
     Active Substance: ZOPICLONE
     Indication: SLEEP DISORDER
     Route: 048
     Dates: start: 2015
  5. METFORMIN [Suspect]
     Active Substance: METFORMIN HYDROCHLORIDE
     Indication: TYPE 2 DIABETES MELLITUS
     Dosage: 1700 MILLIGRAM DAILY;
     Route: 048
     Dates: start: 201609
  6. PAROXETINE. [Suspect]
     Active Substance: PAROXETINE
     Indication: DEPRESSION
     Dosage: 50 MILLIGRAM DAILY;
     Route: 048
     Dates: start: 201509

REACTIONS (2)
  - Pulmonary embolism [Recovered/Resolved]
  - Deep vein thrombosis [Recovered/Resolved]

NARRATIVE: CASE EVENT DATE: 201701
